FAERS Safety Report 7770078-6 (Version None)
Quarter: 2011Q3

REPORT INFORMATION
  Report Type: 
  Country: None (occurrence: None)
  Receive Date: 20110922
  Receipt Date: 20110419
  Transmission Date: 20111222
  Serious: No
  Sender: FDA-Public Use
  Company Number: US-ASTRAZENECA-2011SE05313

PATIENT
  Age: 17 Year
  Sex: Male
  Weight: 104.8 kg

DRUGS (2)
  1. SEROQUEL XR [Suspect]
     Indication: AUTISM
     Route: 048
     Dates: start: 20090101
  2. SEROQUEL XR [Suspect]
     Route: 048
     Dates: start: 20090101

REACTIONS (6)
  - OVERWEIGHT [None]
  - ALANINE AMINOTRANSFERASE INCREASED [None]
  - GLYCOSYLATED HAEMOGLOBIN INCREASED [None]
  - ASPARTATE AMINOTRANSFERASE INCREASED [None]
  - PRURITUS GENERALISED [None]
  - BLOOD GLUCOSE INCREASED [None]
